FAERS Safety Report 7575108-2 (Version None)
Quarter: 2011Q2

REPORT INFORMATION
  Report Type: 
  Country: None (occurrence: None)
  Receive Date: 20110627
  Receipt Date: 20110620
  Transmission Date: 20111010
  Serious: Yes (Hospitalization, Other)
  Sender: FDA-Public Use
  Company Number: JP-PFIZER INC-2011037788

PATIENT
  Age: 47 Year
  Sex: Female
  Weight: 50 kg

DRUGS (5)
  1. AZULFIDINE [Suspect]
     Indication: RHEUMATOID ARTHRITIS
     Dosage: 250 MG, 2X/DAY
     Route: 048
     Dates: start: 20091016, end: 20091030
  2. MAGNESIUM OXIDE [Concomitant]
  3. LANSOPRAZOLE [Concomitant]
     Indication: PROPHYLAXIS AGAINST GASTROINTESTINAL ULCER
     Dosage: 15 MG, 1X/DAY
     Route: 048
     Dates: start: 20091001, end: 20091130
  4. AZULFIDINE [Suspect]
     Dosage: 500 MG, 2X/DAY
     Route: 048
     Dates: start: 20091031, end: 20091130
  5. BIO THREE [Concomitant]

REACTIONS (7)
  - LYMPHADENOPATHY [None]
  - DRUG RASH WITH EOSINOPHILIA AND SYSTEMIC SYMPTOMS [None]
  - OROPHARYNGEAL PAIN [None]
  - ABDOMINAL PAIN LOWER [None]
  - RASH [None]
  - HEPATIC FUNCTION ABNORMAL [None]
  - PYREXIA [None]
